FAERS Safety Report 10190848 (Version 2)
Quarter: 2014Q3

REPORT INFORMATION
  Report Type: Report from Study
  Country: JP (occurrence: JP)
  Receive Date: 20140523
  Receipt Date: 20140708
  Transmission Date: 20150326
  Serious: Yes (Death, Other)
  Sender: FDA-Public Use
  Company Number: JP-SHIRE-JP201402366

PATIENT
  Age: 80 Year
  Sex: Male

DRUGS (17)
  1. 405 (LANTHANUM CARBONATE) [Suspect]
     Active Substance: LANTHANUM CARBONATE
     Indication: HYPERPHOSPHATAEMIA
     Dosage: 500 MG, UNKNOWN
     Route: 048
     Dates: start: 20130719, end: 20131001
  2. LASIX [Concomitant]
     Active Substance: FUROSEMIDE
     Indication: PRODUCT USED FOR UNKNOWN INDICATION
     Dosage: 80 MG, UNKNOWN
     Route: 048
  3. ROCALTROL [Concomitant]
     Active Substance: CALCITRIOL
     Indication: PRODUCT USED FOR UNKNOWN INDICATION
     Dosage: 0.25 ?G, UNKNOWN
     Route: 048
     Dates: start: 20080208, end: 20120118
  4. FLUITRAN [Concomitant]
     Active Substance: TRICHLORMETHIAZIDE
     Indication: PRODUCT USED FOR UNKNOWN INDICATION
     Dosage: 4 MG, UNKNOWN
     Route: 048
  5. METHYCOBAL [Concomitant]
     Active Substance: METHYLCOBALAMIN
     Indication: PRODUCT USED FOR UNKNOWN INDICATION
     Dosage: 1500 ?G, UNKNOWN
     Route: 048
  6. AVAPRO [Concomitant]
     Active Substance: IRBESARTAN
     Indication: PRODUCT USED FOR UNKNOWN INDICATION
     Dosage: 50 MG, UNKNOWN
     Route: 048
  7. SALOBEL [Concomitant]
     Active Substance: ALLOPURINOL
     Indication: PRODUCT USED FOR UNKNOWN INDICATION
     Dosage: 200 MG, UNKNOWN
     Route: 048
  8. PARIET [Concomitant]
     Active Substance: RABEPRAZOLE SODIUM
     Indication: PRODUCT USED FOR UNKNOWN INDICATION
     Dosage: 10 MG, UNKNOWN
     Route: 048
  9. CALFINA [Concomitant]
     Indication: PRODUCT USED FOR UNKNOWN INDICATION
     Dosage: 0.25 ?G, UNKNOWN
     Route: 048
     Dates: start: 20120119, end: 20131001
  10. PANALDINE [Concomitant]
     Active Substance: TICLOPIDINE HYDROCHLORIDE
     Indication: PRODUCT USED FOR UNKNOWN INDICATION
     Dosage: 200 MG, UNKNOWN
     Route: 048
  11. ALESION [Concomitant]
     Active Substance: EPINASTINE HYDROCHLORIDE
     Indication: PRODUCT USED FOR UNKNOWN INDICATION
     Dosage: 20 MG, UNKNOWN
     Route: 048
  12. PRECIPITATED CALCIUM CARBONATE [Concomitant]
     Active Substance: CALCIUM CARBONATE
     Indication: HYPERPHOSPHATAEMIA
     Dosage: 1.0 G, UNKNOWN
     Route: 048
     Dates: start: 20120511, end: 20131001
  13. PREDONINE [Concomitant]
     Active Substance: PREDNISOLONE\PREDNISOLONE ACETATE\PREDNISOLONE SODIUM SUCCINATE
     Indication: PRODUCT USED FOR UNKNOWN INDICATION
     Dosage: 10 MG, UNKNOWN
     Route: 048
  14. EPOGIN [Concomitant]
     Indication: PRODUCT USED FOR UNKNOWN INDICATION
     Dosage: 3750 IU, 1X/WEEK
     Route: 042
  15. PRECIPITATED CALCIUM CARBONATE [Concomitant]
     Active Substance: CALCIUM CARBONATE
     Dosage: 1.5 G, UNKNOWN
     Route: 048
     Dates: start: 20070708, end: 20120510
  16. 405 (LANTHANUM CARBONATE) [Suspect]
     Active Substance: LANTHANUM CARBONATE
     Indication: HYPERPHOSPHATAEMIA
     Dosage: 500 MG, UNKNOWN
     Route: 048
     Dates: start: 20100926, end: 20130718
  17. VOGLIBOSE [Concomitant]
     Active Substance: VOGLIBOSE
     Indication: PRODUCT USED FOR UNKNOWN INDICATION
     Dosage: 0.4 MG, UNKNOWN
     Route: 048

REACTIONS (2)
  - Pancreatic carcinoma [Fatal]
  - Pneumonia aspiration [Unknown]

NARRATIVE: CASE EVENT DATE: 20121115
